FAERS Safety Report 6664708-X (Version None)
Quarter: 2010Q1

REPORT INFORMATION
  Report Type: 
  Country: None (occurrence: None)
  Receive Date: 20100330
  Receipt Date: 20100209
  Transmission Date: 20100710
  Serious: Yes (Hospitalization)
  Sender: FDA-Public Use
  Company Number: 6057887

PATIENT
  Sex: Male

DRUGS (7)
  1. LEVOTHYROXINE SODIUM [Suspect]
     Indication: HYPOTHYROIDISM
     Dosage: 1 DOSE FORMS, ORAL
     Route: 048
  2. KORETIC (QUINAPRIL, HYDROCHLORIDE) [Concomitant]
  3. ISOPTINE (120 MG) ( VERAPAMIL HYDROCHOLORIDE) [Concomitant]
  4. ELISOR (20 MG) (PRAVASTIN SODIUM) [Concomitant]
  5. STAGIN (METFORMIN EMBONATE) [Concomitant]
  6. KARDEGIC (75 MG) ACETYLSALICYLATE LYSINE) [Concomitant]
  7. QUINAPRIL HCL [Concomitant]

REACTIONS (2)
  - BLOOD PRESSURE INCREASED [None]
  - TACHYCARDIA [None]
